FAERS Safety Report 6172668-3 (Version None)
Quarter: 2009Q2

REPORT INFORMATION
  Report Type: 
  Country: None (occurrence: None)
  Receive Date: 20090430
  Receipt Date: 20090422
  Transmission Date: 20091009
  Serious: Yes (Hospitalization)
  Sender: FDA-Public Use
  Company Number: GR-JNJFOC-20090405316

PATIENT
  Age: 28 Year
  Sex: Male

DRUGS (1)
  1. DORIBAX [Suspect]
     Indication: INFECTION
     Route: 041

REACTIONS (1)
  - CARDIOMYOPATHY [None]
